FAERS Safety Report 4555579-6 (Version None)
Quarter: 2005Q1

REPORT INFORMATION
  Report Type: 
  Country: None (occurrence: None)
  Receive Date: 20050118
  Receipt Date: 20050118
  Transmission Date: 20050727
  Serious: Yes (Other)
  Sender: FDA-Public Use
  Company Number: None

PATIENT
  Age: 52 Year
  Sex: Male
  Weight: 98.8842 kg

DRUGS (2)
  1. ERBITUX [Suspect]
     Indication: COLON CANCER METASTATIC
     Dosage: 800 MG IV  X 1
     Route: 042
     Dates: start: 20040611
  2. ERBITUX [Suspect]
     Indication: METASTASES TO LIVER
     Dosage: 800 MG IV  X 1
     Route: 042
     Dates: start: 20040611

REACTIONS (1)
  - PRURITUS GENERALISED [None]
